FAERS Safety Report 5529468-4 (Version None)
Quarter: 2007Q4

REPORT INFORMATION
  Report Type: 
  Country: None (occurrence: None)
  Receive Date: 20071129
  Receipt Date: 20071119
  Transmission Date: 20080405
  Serious: Yes (Other)
  Sender: FDA-Public Use
  Company Number: JP-JNJFOC-20071109147

PATIENT
  Sex: Male
  Weight: 44 kg

DRUGS (7)
  1. REMICADE [Suspect]
     Route: 042
  2. REMICADE [Suspect]
     Route: 042
  3. REMICADE [Suspect]
     Indication: RHEUMATOID ARTHRITIS
     Route: 042
  4. RHEUMATREX [Concomitant]
     Indication: RHEUMATOID ARTHRITIS
     Route: 048
  5. AZULFIDINE EN-TABS [Concomitant]
     Route: 048
  6. HYPEN [Concomitant]
     Route: 048
  7. PREDONINE [Concomitant]
     Route: 048

REACTIONS (1)
  - TUBERCULOSIS [None]
